FAERS Safety Report 17132071 (Version 1)
Quarter: 2019Q4

REPORT INFORMATION
  Report Type: Spontaneous
  Country: HN (occurrence: HN)
  Receive Date: 20191210
  Receipt Date: 20191210
  Transmission Date: 20200122
  Serious: Yes (Other)
  Sender: FDA-Public Use
  Company Number: HN-SA-2019SA335973

PATIENT
  Age: 71 Year
  Sex: Male

DRUGS (1)
  1. TOUJEO [Suspect]
     Active Substance: INSULIN GLARGINE
     Indication: DIABETES MELLITUS
     Dosage: 23 IU, QD
     Route: 065

REACTIONS (5)
  - Malaise [Recovered/Resolved]
  - Blood triglycerides increased [Recovered/Resolved]
  - Cataract [Recovered/Resolved]
  - Depression [Recovered/Resolved]
  - Cerebrovascular accident [Recovered/Resolved]
